FAERS Safety Report 10451555 (Version 4)
Quarter: 2014Q4

REPORT INFORMATION
  Report Type: Spontaneous
  Country: US (occurrence: US)
  Receive Date: 20140914
  Receipt Date: 20141110
  Transmission Date: 20150528
  Serious: No
  Sender: FDA-Public Use
  Company Number: US-009507513-1409USA003089

PATIENT
  Age: 38 Year
  Sex: Female
  Weight: 72.56 kg

DRUGS (2)
  1. NUVARING [Suspect]
     Active Substance: ETHINYL ESTRADIOL\ETONOGESTREL
     Indication: CONTRACEPTION
     Dosage: DOSE/FREQUENCY: 3 WEEKS IN 1 WEEK OUT
     Route: 067
     Dates: start: 2005
  2. ALAVERT ALLERGY [Concomitant]
     Active Substance: LORATADINE

REACTIONS (11)
  - Haemorrhage [Unknown]
  - Pain [Unknown]
  - Discomfort [Unknown]
  - Medical device discomfort [Unknown]
  - Feeling abnormal [Unknown]
  - Vulvovaginal discomfort [Unknown]
  - Abdominal pain lower [Unknown]
  - Abdominal distension [Unknown]
  - Vaginal cyst [Unknown]
  - Discomfort [Unknown]
  - Abdominal pain [Unknown]

NARRATIVE: CASE EVENT DATE: 200909
